FAERS Safety Report 7777540-0 (Version None)
Quarter: 2011Q3

REPORT INFORMATION
  Report Type: 
  Country: None (occurrence: None)
  Receive Date: 20110922
  Receipt Date: 20110906
  Transmission Date: 20111222
  Serious: Yes (Other)
  Sender: FDA-Public Use
  Company Number: FK201101935

PATIENT
  Age: 69 Year
  Sex: Male

DRUGS (3)
  1. OXALIPLATIN [Suspect]
     Indication: METASTASES TO LIVER
  2. FLUOROURACIL [Suspect]
     Indication: METASTASES TO LIVER
  3. LEUCOVORIN CALCIUM [Suspect]
     Indication: METASTASES TO LIVER

REACTIONS (7)
  - PYREXIA [None]
  - INTERSTITIAL LUNG DISEASE [None]
  - HEART RATE INCREASED [None]
  - RASH [None]
  - RESPIRATORY RATE INCREASED [None]
  - NEUTROPENIA [None]
  - COUGH [None]
